FAERS Safety Report 20951843 (Version 1)
Quarter: 2022Q2

REPORT INFORMATION
  Report Type: Spontaneous
  Country: SK (occurrence: SK)
  Receive Date: 20220613
  Receipt Date: 20220613
  Transmission Date: 20220721
  Serious: Yes (Other)
  Sender: FDA-Public Use
  Company Number: None

PATIENT
  Age: 66 Year
  Sex: Male
  Weight: 100 kg

DRUGS (1)
  1. STELARA [Suspect]
     Active Substance: USTEKINUMAB
     Indication: Psoriasis
     Dosage: 2 AMP. S.C. A 12 TYZD?OV
     Route: 058
     Dates: start: 201111, end: 20210414

REACTIONS (1)
  - Nodular melanoma [Not Recovered/Not Resolved]

NARRATIVE: CASE EVENT DATE: 20210301
